FAERS Safety Report 4563661-2 (Version None)
Quarter: 2005Q1

REPORT INFORMATION
  Report Type: 
  Country: None (occurrence: None)
  Receive Date: 20050124
  Receipt Date: 20050112
  Transmission Date: 20050727
  Serious: Yes (Hospitalization)
  Sender: FDA-Public Use
  Company Number: 2005-01-0935

PATIENT
  Sex: 0

DRUGS (3)
  1. NASONEX [Suspect]
     Dosage: NASAL SPRAY
  2. TELFAST (FEXOFENADINE) [Suspect]
  3. PREDNISOLONE [Suspect]

REACTIONS (3)
  - OEDEMA PERIPHERAL [None]
  - SWELLING FACE [None]
  - URTICARIA [None]
